FAERS Safety Report 6826233-2 (Version None)
Quarter: 2010Q3

REPORT INFORMATION
  Report Type: 
  Country: None (occurrence: None)
  Receive Date: 20100709
  Receipt Date: 20100625
  Transmission Date: 20110219
  Serious: Yes (Disabling)
  Sender: FDA-Public Use
  Company Number: PHHY2010PT42320

PATIENT
  Sex: Female

DRUGS (10)
  1. ACLASTA [Suspect]
     Indication: OSTEOPOROSIS POSTMENOPAUSAL
     Dosage: 5 MG
     Route: 042
     Dates: start: 20100519
  2. ACETAMINOPHEN [Concomitant]
     Dosage: 3 PILLS PER DAY
     Route: 048
  3. TRAMADOL HCL [Concomitant]
     Dosage: 3 PILLS PER DAY
     Route: 048
  4. MELOXICAM [Concomitant]
     Dosage: 15 MG
  5. DULOXETINE HYDROCHLORIDE [Concomitant]
     Dosage: 60 MG
     Route: 048
  6. FLUOXETINE [Concomitant]
     Dosage: 20 MG
     Route: 048
  7. IDEBENONE [Concomitant]
     Dosage: 45 MG
     Route: 048
  8. SIMVASTATIN [Concomitant]
     Dosage: 1 PILL PER DAY
     Route: 048
  9. EZETIMIBE [Concomitant]
     Dosage: 1 PILL PER DAY
     Route: 048
  10. GABAPENTIN [Concomitant]
     Dosage: 1200 MG

REACTIONS (3)
  - HYPERTONIA [None]
  - MYALGIA [None]
  - PAIN [None]
